FAERS Safety Report 12228102 (Version 1)
Quarter: 2016Q1

REPORT INFORMATION
  Report Type: Spontaneous
  Country: US (occurrence: None)
  Receive Date: 20160330
  Receipt Date: 20160330
  Transmission Date: 20160526
  Serious: Yes (Disabling)
  Sender: FDA-Public Use
  Company Number: None

PATIENT
  Age: 56 Year
  Sex: Female
  Weight: 79.83 kg

DRUGS (7)
  1. MAGNESIUM [Concomitant]
     Active Substance: MAGNESIUM
  2. VITAMIN B12 [Concomitant]
     Active Substance: CYANOCOBALAMIN
  3. LOPIC [Concomitant]
  4. ALPHA [Concomitant]
     Active Substance: ACETAMINOPHEN\CAFFEINE\PROPYPHENAZONE
  5. ZINC [Concomitant]
     Active Substance: ZINC\ZINC CHLORIDE
  6. XEOMIN [Suspect]
     Active Substance: INCOBOTULINUMTOXINA
     Indication: MIGRAINE
  7. MULTI VIT [Concomitant]

REACTIONS (14)
  - Pruritus [None]
  - Cyst [None]
  - Fatigue [None]
  - Oropharyngeal pain [None]
  - Influenza like illness [None]
  - Pyrexia [None]
  - Pain [None]
  - Rash [None]
  - Hypoaesthesia [None]
  - Burning sensation [None]
  - Chills [None]
  - Skin disorder [None]
  - Dry skin [None]
  - Seborrhoea [None]

NARRATIVE: CASE EVENT DATE: 20151124
